FAERS Safety Report 5645327-0 (Version None)
Quarter: 2008Q1

REPORT INFORMATION
  Report Type: 
  Country: None (occurrence: None)
  Receive Date: 20080229
  Receipt Date: 20080225
  Transmission Date: 20080703
  Serious: Yes (Life-Threatening)
  Sender: FDA-Public Use
  Company Number: B0504930A

PATIENT
  Age: 72 Year
  Sex: Female
  Weight: 48 kg

DRUGS (9)
  1. MODACIN [Suspect]
     Indication: INFECTION
     Dosage: 1G TWICE PER DAY
     Route: 042
     Dates: start: 20071115, end: 20071122
  2. DALACIN [Suspect]
     Indication: INFECTION
     Dosage: .6G TWICE PER DAY
     Route: 042
     Dates: start: 20071115, end: 20071122
  3. URSO 250 [Concomitant]
     Indication: CHOLELITHIASIS
     Dosage: 300MG THREE TIMES PER DAY
     Route: 048
     Dates: start: 20071118, end: 20071122
  4. CEROCRAL [Concomitant]
     Dosage: 60MG THREE TIMES PER DAY
     Route: 048
     Dates: start: 20071118, end: 20071122
  5. SELBEX [Concomitant]
     Indication: GASTRITIS
     Dosage: 150MG THREE TIMES PER DAY
     Route: 048
     Dates: start: 20071118, end: 20071122
  6. ATELEC [Concomitant]
     Indication: HYPERTENSION
     Dosage: 20MG PER DAY
     Route: 048
     Dates: start: 20071118, end: 20071122
  7. TAKEPRON [Concomitant]
     Route: 048
     Dates: start: 20071126
  8. POLLAKISU [Concomitant]
     Indication: POLLAKIURIA
     Dosage: 6MG THREE TIMES PER DAY
     Route: 048
     Dates: start: 20071118, end: 20071122
  9. MYSLEE [Concomitant]
     Indication: INSOMNIA
     Dosage: 10MG PER DAY
     Route: 048
     Dates: start: 20071118, end: 20071122

REACTIONS (8)
  - ABSCESS [None]
  - ACUTE GENERALISED EXANTHEMATOUS PUSTULOSIS [None]
  - BODY TEMPERATURE INCREASED [None]
  - ERYTHEMA [None]
  - OLIGURIA [None]
  - RASH PUSTULAR [None]
  - RENAL FAILURE ACUTE [None]
  - URINE OUTPUT DECREASED [None]
